FAERS Safety Report 9361665 (Version 1)
Quarter: 2013Q2

REPORT INFORMATION
  Report Type: Spontaneous
  Country: TN (occurrence: TN)
  Receive Date: 20130621
  Receipt Date: 20130621
  Transmission Date: 20140414
  Serious: Yes (Hospitalization)
  Sender: FDA-Public Use
  Company Number: TN-ROXANE LABORATORIES, INC.-2013-RO-00988RO

PATIENT
  Age: 34 Year
  Sex: Female

DRUGS (3)
  1. AZATHIOPRINE [Suspect]
     Indication: RENAL TRANSPLANT
  2. PREDNISONE [Suspect]
     Indication: RENAL TRANSPLANT
  3. TACROLIMUS [Suspect]
     Indication: RENAL TRANSPLANT

REACTIONS (1)
  - Cutaneous leishmaniasis [Recovered/Resolved]
